FAERS Safety Report 11279804 (Version 1)
Quarter: 2015Q3

REPORT INFORMATION
  Report Type: Spontaneous
  Country: FR (occurrence: FR)
  Receive Date: 20150717
  Receipt Date: 20150717
  Transmission Date: 20151125
  Serious: Yes (Hospitalization)
  Sender: FDA-Public Use
  Company Number: FR-PFIZER INC-2015230312

PATIENT
  Age: 76 Year
  Sex: Male

DRUGS (8)
  1. CETIRIZINE [Concomitant]
     Active Substance: CETIRIZINE HYDROCHLORIDE
  2. FLECAINE [Concomitant]
     Active Substance: FLECAINIDE
  3. TAHOR [Suspect]
     Active Substance: ATORVASTATIN CALCIUM
     Dosage: UNK
     Route: 048
     Dates: start: 20150415, end: 20150530
  4. PREVISCAN [Suspect]
     Active Substance: FLUINDIONE
     Dosage: UNK
     Route: 048
     Dates: start: 20150415, end: 20150530
  5. ACTISOUFRE [Concomitant]
  6. CANDESARTAN [Concomitant]
     Active Substance: CANDESARTAN
  7. FLIXOTIDE [Concomitant]
     Active Substance: FLUTICASONE PROPIONATE
  8. RHINOCORT [Concomitant]
     Active Substance: BUDESONIDE

REACTIONS (1)
  - Drug reaction with eosinophilia and systemic symptoms [Recovered/Resolved]

NARRATIVE: CASE EVENT DATE: 20150515
